FAERS Safety Report 18490030 (Version 1)
Quarter: 2020Q4

REPORT INFORMATION
  Report Type: Spontaneous
  Country: FR (occurrence: FR)
  Receive Date: 20201111
  Receipt Date: 20201111
  Transmission Date: 20210114
  Serious: Yes (Death, Hospitalization, Other)
  Sender: FDA-Public Use
  Company Number: FR-PFIZER INC-2020437053

PATIENT
  Age: 49 Year
  Sex: Male
  Weight: 76 kg

DRUGS (6)
  1. CISPLATINE [Suspect]
     Active Substance: CISPLATIN
     Indication: TESTIS CANCER
     Dosage: 190 MG, CYCLIC
     Route: 042
     Dates: start: 20200901, end: 20200905
  2. CISPLATINE [Suspect]
     Active Substance: CISPLATIN
     Dosage: 198 MG, 1X/DAY
     Route: 042
     Dates: start: 20200923, end: 20200923
  3. OXALIPLATIN. [Suspect]
     Active Substance: OXALIPLATIN
     Indication: TESTIS CANCER
     Dosage: 247 MG, CYCLIC
     Route: 042
     Dates: start: 20200910, end: 20200910
  4. BLEOMYCIN [Suspect]
     Active Substance: BLEOMYCIN SULFATE
     Indication: TESTIS CANCER
     Dosage: 90 MG, CYCLIC
     Route: 042
     Dates: start: 20200901, end: 20200915
  5. PACLITAXEL. [Suspect]
     Active Substance: PACLITAXEL
     Indication: TESTIS CANCER
     Dosage: 330 MG, CYCLIC
     Route: 042
     Dates: start: 20200901, end: 20200901
  6. ETOPOSIDE. [Suspect]
     Active Substance: ETOPOSIDE
     Indication: TESTIS CANCER
     Dosage: 950 MG, CYCLIC
     Route: 042
     Dates: start: 20200901, end: 20200905

REACTIONS (6)
  - Product use in unapproved indication [Unknown]
  - Cardio-respiratory arrest [Fatal]
  - Respiratory failure [Fatal]
  - Lung disorder [Fatal]
  - Acute respiratory distress syndrome [Fatal]
  - Off label use [Unknown]

NARRATIVE: CASE EVENT DATE: 20200901
